FAERS Safety Report 5154321-8 (Version None)
Quarter: 2006Q4

REPORT INFORMATION
  Report Type: 
  Country: None (occurrence: None)
  Receive Date: 20061120
  Receipt Date: 20060502
  Transmission Date: 20070319
  Serious: Yes (Hospitalization, Other)
  Sender: FDA-Public Use
  Company Number: US-ELI_LILLY_AND_COMPANY-US200608005533

PATIENT
  Sex: Female
  Weight: 94.331 kg

DRUGS (2)
  1. ZYPREXA [Suspect]
     Dosage: 2.5 MG, UNKNOWN
     Route: 065
     Dates: start: 19961201, end: 20060301
  2. ZYPREXA [Suspect]
     Dosage: 10 MG, UNKNOWN
     Route: 065
     Dates: start: 19961201, end: 20060301

REACTIONS (4)
  - ARRHYTHMIA [None]
  - GLUCOSE TOLERANCE IMPAIRED [None]
  - HAEMOPTYSIS [None]
  - RENAL IMPAIRMENT [None]
